FAERS Safety Report 4308941-0 (Version None)
Quarter: 2004Q1

REPORT INFORMATION
  Report Type: 
  Country: None (occurrence: None)
  Receive Date: 20040227
  Receipt Date: 20040218
  Transmission Date: 20041129
  Serious: Yes (Hospitalization)
  Sender: FDA-Public Use
  Company Number: US-JNJFOC-20031205427

PATIENT
  Age: 70 Year
  Sex: Female

DRUGS (12)
  1. REMICADE [Suspect]
     Indication: CROHN'S DISEASE
     Dosage: 5 MG/KG
     Dates: start: 20031120
  2. METHOTREXATE SODIUM [Concomitant]
  3. PREDNISONE [Concomitant]
  4. ANTIBIOTICS (ANTIBIOTICS) [Concomitant]
  5. PREMARIN [Concomitant]
  6. ALLOPURINOL [Concomitant]
  7. AVANDIA (ROSIGLITAZONE MELEATE) [Concomitant]
  8. GLUCOTROL [Concomitant]
  9. GLUCOTROL [Concomitant]
  10. ENALAPRIL/HCTZ (VASRETIC) [Concomitant]
  11. PRILOSCE (OMEPRAZOEL) [Concomitant]
  12. ASACOL (MESALAZIE) [Concomitant]

REACTIONS (5)
  - CEREBRAL DISORDER [None]
  - INFECTION [None]
  - NOCARDIOSIS [None]
  - NUCLEAR MAGNETIC RESONANCE IMAGING BRAIN ABNORMAL [None]
  - PNEUMONIA [None]
